FAERS Safety Report 6726606-2 (Version None)
Quarter: 2010Q2

REPORT INFORMATION
  Report Type: 
  Country: None (occurrence: None)
  Receive Date: 20100514
  Receipt Date: 20100506
  Transmission Date: 20101027
  Serious: Yes (Other)
  Sender: FDA-Public Use
  Company Number: CH-AMGEN-QUU410910

PATIENT
  Sex: Male
  Weight: 85 kg

DRUGS (7)
  1. ARANESP [Suspect]
     Indication: RENAL FAILURE CHRONIC
     Route: 058
     Dates: start: 20070501
  2. MARCUMAR [Concomitant]
     Route: 048
     Dates: start: 20070401
  3. RENAGEL [Concomitant]
     Route: 048
     Dates: start: 20080501
  4. IRBESARTAN [Concomitant]
     Route: 048
     Dates: start: 20080501
  5. PANTOZOL [Concomitant]
     Route: 048
     Dates: start: 20080501
  6. MST [Concomitant]
     Route: 048
     Dates: start: 20080501
  7. ROCALTROL [Concomitant]
     Route: 048
     Dates: start: 20080501

REACTIONS (2)
  - APLASIA PURE RED CELL [None]
  - THERAPEUTIC RESPONSE DECREASED [None]
